FAERS Safety Report 7435365-X (Version None)
Quarter: 2011Q2

REPORT INFORMATION
  Report Type: 
  Country: None (occurrence: None)
  Receive Date: 20110425
  Receipt Date: 20110414
  Transmission Date: 20111010
  Serious: Yes (Hospitalization)
  Sender: FDA-Public Use
  Company Number: B0714044A

PATIENT
  Sex: Male
  Weight: 51 kg

DRUGS (6)
  1. MAXIPIME [Suspect]
     Dosage: 4G PER DAY
     Route: 042
     Dates: start: 20070525, end: 20070531
  2. MUCOSTA [Concomitant]
     Dosage: 300MG PER DAY
     Route: 048
     Dates: start: 20070514, end: 20070525
  3. DIFLUCAN [Concomitant]
     Dosage: 400MG PER DAY
     Route: 048
     Dates: start: 20070514, end: 20070525
  4. ALKERAN [Suspect]
     Indication: STEM CELL TRANSPLANT
     Dosage: 100MGM2 PER DAY
     Route: 042
     Dates: start: 20070514, end: 20070515
  5. CRAVIT [Concomitant]
     Dosage: 300MG PER DAY
     Route: 048
     Dates: start: 20070514, end: 20070525
  6. BAKTAR [Concomitant]
     Dosage: 4IUAX PER DAY
     Route: 048
     Dates: start: 20070514, end: 20070515

REACTIONS (1)
  - FEBRILE NEUTROPENIA [None]
